FAERS Safety Report 14020161 (Version 3)
Quarter: 2017Q4

REPORT INFORMATION
  Report Type: Other
  Country: US (occurrence: US)
  Receive Date: 20170928
  Receipt Date: 20171129
  Transmission Date: 20180321
  Serious: Yes (Hospitalization, Disabling, Other)
  Sender: FDA-Public Use
  Company Number: US-ACORDA-ACO_142108_2017

PATIENT
  Sex: Female

DRUGS (1)
  1. AMPYRA [Suspect]
     Active Substance: DALFAMPRIDINE
     Indication: PRODUCT USED FOR UNKNOWN INDICATION
     Dosage: 10 MG, Q 12 HRS
     Route: 048

REACTIONS (7)
  - Monoplegia [Unknown]
  - Therapeutic response unexpected [Unknown]
  - Hemiparesis [Not Recovered/Not Resolved]
  - Fall [Unknown]
  - Central nervous system lesion [Unknown]
  - Asthenia [Unknown]
  - Fatigue [Unknown]
